APPROVED DRUG PRODUCT: TRIAMCINOLONE ACETONIDE
Active Ingredient: TRIAMCINOLONE ACETONIDE
Strength: 0.1%
Dosage Form/Route: CREAM;TOPICAL
Application: A210346 | Product #002
Applicant: STRIDES PHARMA GLOBAL PTE LTD
Approved: Feb 11, 2019 | RLD: No | RS: No | Type: DISCN